FAERS Safety Report 17488777 (Version 1)
Quarter: 2020Q1

REPORT INFORMATION
  Report Type: Spontaneous
  Country: IN (occurrence: IN)
  Receive Date: 20200303
  Receipt Date: 20200303
  Transmission Date: 20200409
  Serious: Yes (Other)
  Sender: FDA-Public Use
  Company Number: IN-MYLANLABS-2020M1023861

PATIENT
  Age: 27 Year
  Sex: Male

DRUGS (3)
  1. AZORAN                             /00001501/ [Suspect]
     Active Substance: AZATHIOPRINE
     Indication: IMMUNOSUPPRESSANT DRUG THERAPY
     Route: 065
  2. OMNACORTIL                         /00016201/ [Suspect]
     Active Substance: PREDNISOLONE
     Indication: IMMUNOSUPPRESSANT DRUG THERAPY
     Route: 065
  3. TACROLIMUS. [Suspect]
     Active Substance: TACROLIMUS
     Indication: IMMUNOSUPPRESSANT DRUG THERAPY
     Route: 065

REACTIONS (5)
  - Infection reactivation [Recovering/Resolving]
  - Azotaemia [Unknown]
  - BK virus infection [Recovering/Resolving]
  - Toxicity to various agents [Recovering/Resolving]
  - Oliguria [Unknown]
